FAERS Safety Report 7117315-9 (Version None)
Quarter: 2010Q4

REPORT INFORMATION
  Report Type: 
  Country: None (occurrence: None)
  Receive Date: 20101122
  Receipt Date: 20101108
  Transmission Date: 20110411
  Serious: Yes (Other)
  Sender: FDA-Public Use
  Company Number: US-ELI_LILLY_AND_COMPANY-US201011002735

PATIENT
  Age: 19 Year
  Sex: Female

DRUGS (4)
  1. HUMATROPE [Suspect]
     Indication: GROWTH HORMONE DEFICIENCY
     Dates: start: 20030101
  2. HUMATROPE [Suspect]
     Dosage: 0.4 MG, DAILY (1/D) FOR TTHREE MONTHS
  3. NORVASC [Concomitant]
     Indication: BLOOD PRESSURE
  4. ANTIDEPRESSANTS [Concomitant]
     Indication: DEPRESSION

REACTIONS (10)
  - BLOOD PRESSURE ABNORMAL [None]
  - BLOOD PRESSURE INCREASED [None]
  - BONE NEOPLASM MALIGNANT [None]
  - DEPRESSION [None]
  - GLUCOSE TOLERANCE TEST ABNORMAL [None]
  - HEADACHE [None]
  - HYPOAESTHESIA [None]
  - HYPOAESTHESIA FACIAL [None]
  - LUNG DISORDER [None]
  - WAIST CIRCUMFERENCE INCREASED [None]
